FAERS Safety Report 17319869 (Version 1)
Quarter: 2020Q1

REPORT INFORMATION
  Report Type: Spontaneous
  Country: US (occurrence: US)
  Receive Date: 20200126
  Receipt Date: 20200126
  Transmission Date: 20200409
  Serious: No
  Sender: FDA-Public Use
  Company Number: US-009507513-2001USA008401

PATIENT
  Sex: Female

DRUGS (1)
  1. NEXPLANON [Suspect]
     Active Substance: ETONOGESTREL
     Indication: POLYCYSTIC OVARIES
     Dosage: 1 DOSAGE FORM
     Route: 059

REACTIONS (3)
  - Product use in unapproved indication [Unknown]
  - Menorrhagia [Unknown]
  - Pain [Unknown]
